FAERS Safety Report 9443423 (Version 1)
Quarter: 2013Q3

REPORT INFORMATION
  Report Type: Report from Study
  Country: BR (occurrence: BR)
  Receive Date: 20130806
  Receipt Date: 20130806
  Transmission Date: 20140515
  Serious: Yes (Other)
  Sender: FDA-Public Use
  Company Number: PHHY2013BR084202

PATIENT
  Sex: Female
  Weight: 78 kg

DRUGS (4)
  1. DIOVAN HCT [Suspect]
     Indication: BLOOD PRESSURE
     Dosage: 1 DF (160/12.5MG) DAILY
     Dates: start: 201210
  2. DIOVAN HCT [Suspect]
     Dosage: 2 DF (160/12.5MG), UKN
  3. PANTOPRAZOLE [Concomitant]
     Dosage: UNK UKN, UNK
     Dates: start: 2006
  4. NORIPURUM [Concomitant]
     Dosage: UNK UKN, UNK

REACTIONS (7)
  - Convulsion [Unknown]
  - Infarction [Unknown]
  - Dyspnoea [Unknown]
  - Abdominal pain upper [Unknown]
  - Blood pressure diastolic increased [Unknown]
  - Memory impairment [Unknown]
  - Blood pressure increased [Unknown]
